FAERS Safety Report 6196285-4 (Version None)
Quarter: 2009Q2

REPORT INFORMATION
  Report Type: 
  Country: None (occurrence: None)
  Receive Date: 20090515
  Receipt Date: 20081211
  Transmission Date: 20091009
  Serious: Yes (Hospitalization)
  Sender: FDA-Public Use
  Company Number: 08-234

PATIENT
  Age: 47 Year
  Sex: Female

DRUGS (12)
  1. FAZACLO ODT [Suspect]
     Indication: SCHIZOPHRENIA
     Dosage: 50 MG TID PO
     Route: 048
     Dates: start: 20080408, end: 20081215
  2. ABILIFY [Concomitant]
  3. ATIVAN [Concomitant]
  4. CARDIZEM CD [Concomitant]
  5. CLARITIN [Concomitant]
  6. COLACE [Concomitant]
  7. LOPRESSOR [Concomitant]
  8. REMERON [Concomitant]
  9. RESTORIL [Concomitant]
  10. RISPERDAL [Concomitant]
  11. TEGRETOL [Concomitant]
  12. WELLBUTRIN SR [Concomitant]

REACTIONS (1)
  - PNEUMONIA [None]
